FAERS Safety Report 19753006 (Version 1)
Quarter: 2021Q3

REPORT INFORMATION
  Report Type: Spontaneous
  Country: US (occurrence: US)
  Receive Date: 20210826
  Receipt Date: 20210826
  Transmission Date: 20211014
  Serious: Yes (Hospitalization)
  Sender: FDA-Public Use
  Company Number: US-TAKEDA-2021TUS052650

PATIENT
  Age: 59 Year
  Sex: Female
  Weight: 79.37 kg

DRUGS (2)
  1. ALUNBRIG [Suspect]
     Active Substance: BRIGATINIB
     Indication: LUNG NEOPLASM MALIGNANT
     Dosage: 180 MILLIGRAM
     Route: 065
     Dates: start: 202106
  2. LOVENOX [Concomitant]
     Active Substance: ENOXAPARIN SODIUM
     Indication: BLOOD PRESSURE MEASUREMENT
     Dosage: 40 MILLIGRAM, QD
     Route: 065

REACTIONS (4)
  - Blood pressure increased [Unknown]
  - Feeling abnormal [Unknown]
  - Headache [Unknown]
  - Abdominal pain upper [Unknown]

NARRATIVE: CASE EVENT DATE: 20210814
